FAERS Safety Report 15966227 (Version 3)
Quarter: 2020Q1

REPORT INFORMATION
  Report Type: Spontaneous
  Country: US (occurrence: US)
  Receive Date: 20190215
  Receipt Date: 20200309
  Transmission Date: 20200409
  Serious: Yes (Other)
  Sender: FDA-Public Use
  Company Number: US-ASTRAZENECA-2018SF65782

PATIENT
  Age: 27635 Day
  Sex: Male
  Weight: 77.1 kg

DRUGS (16)
  1. ALDARA [Concomitant]
     Active Substance: IMIQUIMOD
  2. FLOMAX [Concomitant]
     Active Substance: TAMSULOSIN HYDROCHLORIDE
  3. PROSCAR [Concomitant]
     Active Substance: FINASTERIDE
  4. PYRIDIUM [Concomitant]
     Active Substance: PHENAZOPYRIDINE
  5. LOPRESSOR [Concomitant]
     Active Substance: METOPROLOL TARTRATE
  6. TRAVATAN [Concomitant]
     Active Substance: TRAVOPROST
  7. VIAGRA [Concomitant]
     Active Substance: SILDENAFIL CITRATE
  8. PRILOSEC OTC [Suspect]
     Active Substance: OMEPRAZOLE MAGNESIUM
     Route: 048
  9. CAVERJECT [Concomitant]
     Active Substance: ALPROSTADIL
  10. PRILOSEC [Suspect]
     Active Substance: OMEPRAZOLE MAGNESIUM
     Route: 048
  11. CIPRO [Concomitant]
     Active Substance: CIPROFLOXACIN HYDROCHLORIDE
  12. PEPCID [Concomitant]
     Active Substance: FAMOTIDINE
  13. ZOCOR [Concomitant]
     Active Substance: SIMVASTATIN
  14. PRILOSEC [Suspect]
     Active Substance: OMEPRAZOLE MAGNESIUM
     Route: 048
     Dates: start: 201601, end: 201601
  15. LISINOPRIL. [Concomitant]
     Active Substance: LISINOPRIL
  16. KEFLEX [Concomitant]
     Active Substance: CEPHALEXIN

REACTIONS (6)
  - Nephrogenic anaemia [Unknown]
  - Renal injury [Unknown]
  - Chronic kidney disease [Unknown]
  - Rebound acid hypersecretion [Unknown]
  - Renal impairment [Not Recovered/Not Resolved]
  - Renal failure [Unknown]

NARRATIVE: CASE EVENT DATE: 20120127
